FAERS Safety Report 8914783 (Version 1)
Quarter: 2012Q4

REPORT INFORMATION
  Report Type: 
  Country: US (occurrence: US)
  Receive Date: 20121119
  Receipt Date: 20121119
  Transmission Date: 20130627
  Serious: Yes (Other)
  Sender: FDA-Public Use
  Company Number: US-ROXANE LABORATORIES, INC.-2012-RO-02372RO

PATIENT

DRUGS (2)
  1. FLUTICASONE [Suspect]
     Indication: HYPERSENSITIVITY
     Route: 045
  2. FLUTICASONE [Suspect]
     Indication: NASAL POLYPS

REACTIONS (2)
  - Dysgeusia [Recovered/Resolved]
  - Nasal inflammation [Unknown]
